FAERS Safety Report 24056591 (Version 2)
Quarter: 2024Q3

REPORT INFORMATION
  Report Type: Report from Study
  Country: US (occurrence: US)
  Receive Date: 20240705
  Receipt Date: 20240820
  Transmission Date: 20241016
  Serious: Yes (Other)
  Sender: ABBVIE
  Company Number: US-ABBVIE-5826096

PATIENT
  Sex: Female

DRUGS (2)
  1. HUMIRA [Suspect]
     Active Substance: ADALIMUMAB
     Indication: Colitis ulcerative
     Route: 058
     Dates: start: 202406
  2. HUMIRA [Suspect]
     Active Substance: ADALIMUMAB
     Route: 058
     Dates: start: 20170331

REACTIONS (5)
  - Open globe injury [Recovering/Resolving]
  - Iris injury [Recovering/Resolving]
  - Visual impairment [Unknown]
  - Fall [Unknown]
  - Pelvic bone injury [Recovering/Resolving]

NARRATIVE: CASE EVENT DATE: 20240101
